FAERS Safety Report 8542656-8 (Version None)
Quarter: 2012Q3

REPORT INFORMATION
  Report Type: 
  Country: None (occurrence: None)
  Receive Date: 20120727
  Receipt Date: 20120717
  Transmission Date: 20120928
  Serious: Yes (Other)
  Sender: FDA-Public Use
  Company Number: PL-AMGEN-POLSP2012045634

PATIENT
  Age: 36 Year
  Sex: Female
  Weight: 65 kg

DRUGS (3)
  1. POLPRAZOL [Concomitant]
     Dosage: 40 MG, UNK
     Route: 048
     Dates: start: 20111101
  2. KETOPROFEN [Concomitant]
     Dosage: 150 MG, UNK
     Route: 048
     Dates: start: 20120201
  3. ENBREL [Suspect]
     Indication: PRODUCT USED FOR UNKNOWN INDICATION
     Dosage: 50 MG, WEEKLY
     Route: 058
     Dates: start: 20120521, end: 20120612

REACTIONS (3)
  - INJECTION SITE RASH [None]
  - INJECTION SITE SWELLING [None]
  - INJECTION SITE PRURITUS [None]
